FAERS Safety Report 18602758 (Version 1)
Quarter: 2020Q4

REPORT INFORMATION
  Report Type: Spontaneous
  Country: US (occurrence: US)
  Receive Date: 20201210
  Receipt Date: 20201210
  Transmission Date: 20210114
  Serious: No
  Sender: FDA-Public Use
  Company Number: US-PERRIGO-20US014137

PATIENT

DRUGS (1)
  1. ALBUTEROL SULFATE. [Suspect]
     Active Substance: ALBUTEROL SULFATE
     Indication: ASTHMA
     Dosage: 270 TO 360 MCG. UNKNOWN
     Route: 055
     Dates: start: 2020

REACTIONS (7)
  - Device delivery system issue [Unknown]
  - Dysgeusia [Unknown]
  - Incorrect dose administered [Unknown]
  - Condition aggravated [Unknown]
  - Accidental exposure to product [Unknown]
  - Drug ineffective [Unknown]
  - Throat irritation [Unknown]

NARRATIVE: CASE EVENT DATE: 2020
